FAERS Safety Report 24282090 (Version 2)
Quarter: 2024Q3

REPORT INFORMATION
  Report Type: Spontaneous
  Country: US (occurrence: US)
  Receive Date: 20240904
  Receipt Date: 20240909
  Transmission Date: 20241016
  Serious: No
  Sender: Haleon PLC
  Company Number: US-HALEON-2195047

PATIENT
  Age: 69 Year
  Sex: Male
  Weight: 78.018 kg

DRUGS (1)
  1. EXCEDRIN MIGRAINE RELIEF [Suspect]
     Active Substance: ACETAMINOPHEN\ASPIRIN\CAFFEINE
     Indication: Migraine
     Dosage: EXPIRY DATE: 2027-03.
     Dates: start: 20240902

REACTIONS (2)
  - Drug ineffective [Unknown]
  - Incorrect dose administered [Unknown]
